FAERS Safety Report 6343312-7 (Version None)
Quarter: 2009Q3

REPORT INFORMATION
  Report Type: 
  Country: None (occurrence: None)
  Receive Date: 20090908
  Receipt Date: 20090828
  Transmission Date: 20100115
  Serious: Yes (Other)
  Sender: FDA-Public Use
  Company Number: PHHY2009BR35545

PATIENT
  Sex: Female
  Weight: 65 kg

DRUGS (10)
  1. EXELON [Suspect]
     Indication: DEMENTIA
     Dosage: 1.5 MG
  2. EXELON [Suspect]
     Indication: MEMORY IMPAIRMENT
  3. EXELON [Suspect]
     Indication: DEMENTIA
     Dosage: 1.5MG
     Route: 062
  4. EXELON [Suspect]
     Indication: MEMORY IMPAIRMENT
     Dosage: 9MG
  5. MONOCORDIL [Concomitant]
     Dosage: 2 TABLETS DAILY
  6. AAS [Concomitant]
     Dosage: 1 TABLET AT LUNCH
  7. SIMVASTATIN [Concomitant]
     Dosage: 20MG , 1 TABLET AT NIGHT
  8. SERTRALINE HCL [Concomitant]
     Dosage: 50MG HALF TABLET IN THE MORNING
  9. ENSURE [Concomitant]
     Dosage: 400G POWDER 6 MEASURES WITH MILK AT NIGHT
  10. FORTEN [Concomitant]

REACTIONS (8)
  - ABNORMAL BEHAVIOUR [None]
  - ACTIVITIES OF DAILY LIVING IMPAIRED [None]
  - AGGRESSION [None]
  - FATIGUE [None]
  - LUNG DISORDER [None]
  - OEDEMA PERIPHERAL [None]
  - URINARY TRACT INFECTION [None]
  - WEIGHT DECREASED [None]
